FAERS Safety Report 5710064-0 (Version None)
Quarter: 2008Q2

REPORT INFORMATION
  Report Type: 
  Country: None (occurrence: None)
  Receive Date: 20080418
  Receipt Date: 20070921
  Transmission Date: 20081010
  Serious: No
  Sender: FDA-Public Use
  Company Number: US-ASTRAZENECA-2007UW22394

PATIENT
  Age: 46 Year
  Sex: Male
  Weight: 77.1 kg

DRUGS (7)
  1. METOPROLOL SUCCINATE [Suspect]
     Route: 048
  2. VYTORIN [Concomitant]
  3. VALTREX [Concomitant]
  4. LEXAPRO [Concomitant]
  5. DINAVIR [Concomitant]
  6. LOTREL [Concomitant]
  7. IBUPROFEN [Concomitant]

REACTIONS (3)
  - AGITATION [None]
  - FEELING ABNORMAL [None]
  - PALPITATIONS [None]
